FAERS Safety Report 5714731-4 (Version None)
Quarter: 2008Q2

REPORT INFORMATION
  Report Type: 
  Country: None (occurrence: None)
  Receive Date: 20080423
  Receipt Date: 20061214
  Transmission Date: 20081010
  Serious: Yes (Death, Hospitalization)
  Sender: FDA-Public Use
  Company Number: JP-ROCHE-366890

PATIENT
  Sex: Female
  Weight: 53 kg

DRUGS (7)
  1. PEGASYS [Suspect]
     Route: 058
     Dates: start: 20040203, end: 20040210
  2. PEGASYS [Suspect]
     Route: 058
     Dates: start: 20040217, end: 20041130
  3. PEGASYS [Suspect]
     Route: 058
     Dates: start: 20041221, end: 20050104
  4. PEGASYS [Suspect]
     Route: 058
     Dates: start: 20050201, end: 20050215
  5. PROLMON [Concomitant]
     Route: 048
  6. GLYCYRRHIZINATE POTASSIUM [Concomitant]
     Dosage: DRUG NAME REPORTED AS KYOMINOTIN. ROUTE OF ADMINISTRATION REPORTED AS INTRAVENOUS (NOT OTHERWISE SP+
     Route: 042
  7. LAENNEC [Concomitant]
     Route: 030
     Dates: end: 20041130

REACTIONS (6)
  - ANXIETY [None]
  - ASCITES [None]
  - DEATH [None]
  - MENTAL DISORDER [None]
  - PYREXIA [None]
  - RENAL IMPAIRMENT [None]
